FAERS Safety Report 19245270 (Version 2)
Quarter: 2021Q2

REPORT INFORMATION
  Report Type: Report from Study
  Country: GB (occurrence: GB)
  Receive Date: 20210511
  Receipt Date: 20210531
  Transmission Date: 20210717
  Serious: Yes (Hospitalization, Other)
  Sender: FDA-Public Use
  Company Number: GB-ALEXION-A202012292

PATIENT
  Age: 70 Year
  Sex: Male

DRUGS (7)
  1. EXJADE [Concomitant]
     Active Substance: DEFERASIROX
     Indication: PRODUCT USED FOR UNKNOWN INDICATION
     Dosage: 320 MG TABLETS, BID, 2 DECIDED DOSES MORNING AND EVENING
     Route: 065
  2. EXJADE [Concomitant]
     Active Substance: DEFERASIROX
     Dosage: 720 MG TABLETS, BID, 2 DECIDED DOSES MORNING AND EVENING
     Route: 065
  3. SOLIRIS [Suspect]
     Active Substance: ECULIZUMAB
     Dosage: 900 MG, Q2W
     Route: 042
     Dates: start: 20181018, end: 20200612
  4. SOLIRIS [Suspect]
     Active Substance: ECULIZUMAB
     Dosage: 1200 MG, Q2W
     Route: 042
     Dates: start: 20200624
  5. INSULIN [Concomitant]
     Active Substance: INSULIN NOS
     Indication: PRODUCT USED FOR UNKNOWN INDICATION
     Dosage: 20 UT, BID
     Route: 065
  6. SOLIRIS [Suspect]
     Active Substance: ECULIZUMAB
     Indication: PAROXYSMAL NOCTURNAL HAEMOGLOBINURIA
     Dosage: 600 MG, QW
     Route: 042
     Dates: start: 20180920, end: 20181011
  7. INSULIN [Concomitant]
     Active Substance: INSULIN NOS
     Dosage: 22 UT, BID
     Route: 065

REACTIONS (25)
  - Chromaturia [Unknown]
  - Dyspnoea [Unknown]
  - Haemolysis [Unknown]
  - Incorrect product administration duration [Unknown]
  - Haemorrhoids [Unknown]
  - Cardiac failure [Not Recovered/Not Resolved]
  - Right ventricular failure [Unknown]
  - Cullen^s sign [Unknown]
  - Platelet count decreased [Unknown]
  - General physical condition abnormal [Unknown]
  - Gastritis [Unknown]
  - Thrombosis [Unknown]
  - Malaise [Unknown]
  - Fatigue [Unknown]
  - Haemoglobin decreased [Unknown]
  - Polyp [Unknown]
  - Joint swelling [Recovering/Resolving]
  - Blood pressure increased [Not Recovered/Not Resolved]
  - Oedema peripheral [Unknown]
  - Haematochezia [Unknown]
  - Dyspnoea exertional [Unknown]
  - Contusion [Not Recovered/Not Resolved]
  - Body temperature increased [Recovered/Resolved]
  - Cyanosis [Unknown]
  - Peripheral swelling [Unknown]

NARRATIVE: CASE EVENT DATE: 20200810
